FAERS Safety Report 25035962 (Version 1)
Quarter: 2025Q1

REPORT INFORMATION
  Report Type: Report from Study
  Country: US (occurrence: US)
  Receive Date: 20250304
  Receipt Date: 20250304
  Transmission Date: 20250409
  Serious: Yes (Other)
  Sender: JOHNSON AND JOHNSON
  Company Number: US-JNJFOC-20250275016

PATIENT
  Age: 44 Year
  Sex: Male

DRUGS (3)
  1. TREMFYA [Suspect]
     Active Substance: GUSELKUMAB
     Indication: Psoriasis
     Route: 058
     Dates: start: 202405
  2. TREMFYA [Suspect]
     Active Substance: GUSELKUMAB
     Route: 058
     Dates: start: 20240616
  3. TREMFYA [Suspect]
     Active Substance: GUSELKUMAB
     Dosage: RECENT DOSE: 22-FEB-2025
     Route: 058

REACTIONS (2)
  - Pneumonia [Recovered/Resolved]
  - Nasopharyngitis [Unknown]
